FAERS Safety Report 7604669-X (Version None)
Quarter: 2011Q3

REPORT INFORMATION
  Report Type: 
  Country: None (occurrence: None)
  Receive Date: 20110712
  Receipt Date: 20110707
  Transmission Date: 20111222
  Serious: Yes (Death)
  Sender: FDA-Public Use
  Company Number: PHHY2011DK61564

PATIENT

DRUGS (4)
  1. AMLODIPINE [Suspect]
     Route: 048
  2. OXAZEPAM [Concomitant]
     Dosage: UNK
  3. CITALOPRAM [Concomitant]
  4. VENLAFAXINE [Concomitant]
     Indication: DEPRESSION

REACTIONS (1)
  - OVERDOSE [None]
